FAERS Safety Report 8373932-X (Version None)
Quarter: 2012Q2

REPORT INFORMATION
  Report Type: 
  Country: None (occurrence: None)
  Receive Date: 20120521
  Receipt Date: 20120514
  Transmission Date: 20120825
  Serious: Yes (Hospitalization, Other)
  Sender: FDA-Public Use
  Company Number: FR-ABBOTT-12P-056-0926373-00

PATIENT
  Sex: Male

DRUGS (4)
  1. FLUTICASONE PROPIONATE/SALMETEROL [Concomitant]
     Indication: PRODUCT USED FOR UNKNOWN INDICATION
     Dosage: 500MCG/50MCG/DOSE DISKUS
     Route: 055
  2. PRAZOSIN HCL [Concomitant]
     Indication: PRODUCT USED FOR UNKNOWN INDICATION
     Route: 048
  3. CLARITHROMYCIN [Suspect]
     Indication: BRONCHITIS
     Route: 048
     Dates: start: 20111227, end: 20120102
  4. EUPRESSYL [Concomitant]
     Indication: PRODUCT USED FOR UNKNOWN INDICATION
     Route: 048

REACTIONS (15)
  - HYPERSENSITIVITY [None]
  - CYTOLYTIC HEPATITIS [None]
  - PLEURAL DISORDER [None]
  - UNEVALUABLE EVENT [None]
  - ASPERGILLOSIS [None]
  - PNEUMONIA MYCOPLASMAL [None]
  - ARTHRALGIA [None]
  - PYREXIA [None]
  - ASTHENIA [None]
  - PULMONARY TOXICITY [None]
  - HEPATIC ENZYME INCREASED [None]
  - EOSINOPHILIA [None]
  - SYSTEMIC INFLAMMATORY RESPONSE SYNDROME [None]
  - C-REACTIVE PROTEIN ABNORMAL [None]
  - PNEUMONIA [None]
